FAERS Safety Report 13195737 (Version 1)
Quarter: 2017Q1

REPORT INFORMATION
  Report Type: Report from Study
  Country: CN (occurrence: CN)
  Receive Date: 20170208
  Receipt Date: 20170208
  Transmission Date: 20170428
  Serious: Yes (Death)
  Sender: FDA-Public Use
  Company Number: CN-ROCHE-1867498

PATIENT
  Age: 74 Year
  Sex: Male
  Weight: 53 kg

DRUGS (1)
  1. AVASTIN [Suspect]
     Active Substance: BEVACIZUMAB
     Indication: RECTAL CANCER
     Route: 041
     Dates: start: 20160521

REACTIONS (5)
  - Abasia [Unknown]
  - Decreased appetite [Unknown]
  - Death [Fatal]
  - Ill-defined disorder [Unknown]
  - Malaise [Unknown]

NARRATIVE: CASE EVENT DATE: 20170103
